FAERS Safety Report 21269777 (Version 1)
Quarter: 2022Q3

REPORT INFORMATION
  Report Type: Spontaneous
  Country: US (occurrence: None)
  Receive Date: 20220829
  Receipt Date: 20220829
  Transmission Date: 20221027
  Serious: No
  Sender: FDA-Public Use
  Company Number: None

PATIENT
  Age: 40 Year
  Sex: Female
  Weight: 98.43 kg

DRUGS (2)
  1. TREMFYA [Suspect]
     Active Substance: GUSELKUMAB
     Indication: Psoriasis
     Dosage: OTHER FREQUENCY : ON WK 1 AND WK 4;?
     Route: 058
     Dates: start: 201910
  2. TREMFYA [Suspect]
     Active Substance: GUSELKUMAB
     Indication: Hidradenitis

REACTIONS (1)
  - COVID-19 [None]
